FAERS Safety Report 16995817 (Version 1)
Quarter: 2019Q4

REPORT INFORMATION
  Report Type: Spontaneous
  Country: IT (occurrence: IT)
  Receive Date: 20191105
  Receipt Date: 20191105
  Transmission Date: 20200122
  Serious: Yes (Other)
  Sender: FDA-Public Use
  Company Number: IT-TEVA-2019-IT-1125867

PATIENT
  Age: 73 Year
  Sex: Female

DRUGS (9)
  1. LUVION [Concomitant]
  2. LASIX [Concomitant]
     Active Substance: FUROSEMIDE
  3. FOLINA [Concomitant]
  4. DIBASE [Concomitant]
     Active Substance: CHOLECALCIFEROL
  5. FENTANYL. [Suspect]
     Active Substance: FENTANYL
     Indication: PAIN
     Route: 065
  6. TACHIPIRINA [Concomitant]
     Active Substance: ACETAMINOPHEN
  7. LYRICA [Concomitant]
     Active Substance: PREGABALIN
  8. DELTACORTENE [Concomitant]
     Active Substance: PREDNISONE
  9. HUMALOG [Concomitant]
     Active Substance: INSULIN LISPRO

REACTIONS (1)
  - Hallucination, visual [Unknown]

NARRATIVE: CASE EVENT DATE: 20190208
